FAERS Safety Report 8154041-1 (Version None)
Quarter: 2012Q1

REPORT INFORMATION
  Report Type: 
  Country: None (occurrence: None)
  Receive Date: 20120221
  Receipt Date: 20120221
  Transmission Date: 20120608
  Serious: Yes (Other)
  Sender: FDA-Public Use
  Company Number: None

PATIENT
  Age: 70 Year
  Sex: Female
  Weight: 84.368 kg

DRUGS (1)
  1. SIMVASTATIN [Suspect]
     Indication: BLOOD CHOLESTEROL INCREASED
     Dosage: 40 MG TAB TEVA
     Route: 048
     Dates: start: 20110211, end: 20111015

REACTIONS (4)
  - GAIT DISTURBANCE [None]
  - PAIN [None]
  - MYALGIA [None]
  - FALL [None]
